FAERS Safety Report 9203549 (Version 1)
Quarter: 2013Q1

REPORT INFORMATION
  Report Type: Spontaneous
  Country: SG (occurrence: None)
  Receive Date: 20130329
  Receipt Date: 20130329
  Transmission Date: 20140127
  Serious: Yes (Other)
  Sender: FDA-Public Use
  Company Number: SYM-2013-02007

PATIENT
  Age: 41 Year
  Sex: Female

DRUGS (4)
  1. FLAGYL [Suspect]
     Indication: PROPHYLAXIS
     Route: 042
     Dates: start: 20130208, end: 20130208
  2. CEFAZOLIN (CEFAZOLIN) [Suspect]
     Indication: PROPHYLAXIS
     Route: 042
     Dates: start: 20130208, end: 20130208
  3. OMEPRAZOLE (OMEPRAZOLE) [Concomitant]
  4. TRAMADOL (TRAMADOL) [Concomitant]

REACTIONS (2)
  - Rash [None]
  - Eye swelling [None]
